FAERS Safety Report 5847967-2 (Version None)
Quarter: 2008Q3

REPORT INFORMATION
  Report Type: 
  Country: None (occurrence: None)
  Receive Date: 20080814
  Receipt Date: 20080731
  Transmission Date: 20090109
  Serious: Yes (Other)
  Sender: FDA-Public Use
  Company Number: 2008S1013690

PATIENT
  Sex: Female

DRUGS (7)
  1. WARFARIN SODIUM [Suspect]
     Indication: GASTROINTESTINAL STROMAL TUMOUR
     Dosage: TRANSPLACENTAL
     Route: 064
  2. DEXTROPROPOXYPHENE NAPSILATE (DEXTROPROPOXYPHENE NAPSILATE) [Concomitant]
  3. HEPARIN SODIUM [Concomitant]
  4. LEVOFLOXACIN [Concomitant]
  5. LORAZEPAM [Concomitant]
  6. ACETAMINOPHEN [Concomitant]
  7. PROCHLORPERAZINE MALEATE [Concomitant]

REACTIONS (8)
  - COARCTATION OF THE AORTA [None]
  - CONGENITAL NOSE MALFORMATION [None]
  - CONGENITAL PHARYNGEAL ANOMALY [None]
  - DANDY-WALKER SYNDROME [None]
  - FOETAL WARFARIN SYNDROME [None]
  - GASTROSCHISIS [None]
  - MATERNAL DRUGS AFFECTING FOETUS [None]
  - VENTRICULAR SEPTAL DEFECT [None]
